FAERS Safety Report 12240974 (Version 1)
Quarter: 2016Q2

REPORT INFORMATION
  Report Type: Spontaneous
  Country: US (occurrence: None)
  Receive Date: 20160405
  Receipt Date: 20160405
  Transmission Date: 20160815
  Serious: No
  Sender: FDA-Public Use
  Company Number: None

PATIENT
  Age: 43 Year
  Sex: Female
  Weight: 65.77 kg

DRUGS (2)
  1. ENTYVIO [Suspect]
     Active Substance: VEDOLIZUMAB
     Indication: CROHN^S DISEASE
     Dosage: EVERY 6 WEEKS INTO A VEIN
     Route: 042
  2. ENTYVIO [Suspect]
     Active Substance: VEDOLIZUMAB
     Indication: COLITIS
     Dosage: EVERY 6 WEEKS INTO A VEIN
     Route: 042

REACTIONS (14)
  - Fatigue [None]
  - Chest discomfort [None]
  - Nausea [None]
  - Diarrhoea [None]
  - Haematochezia [None]
  - Mobility decreased [None]
  - Dizziness [None]
  - Confusional state [None]
  - Headache [None]
  - Back pain [None]
  - Abdominal pain upper [None]
  - Throat tightness [None]
  - Arthralgia [None]
  - Vomiting [None]

NARRATIVE: CASE EVENT DATE: 20160311
